FAERS Safety Report 10615380 (Version 3)
Quarter: 2014Q4

REPORT INFORMATION
  Report Type: Spontaneous
  Country: GB (occurrence: GB)
  Receive Date: 20141201
  Receipt Date: 20141217
  Transmission Date: 20150529
  Serious: Yes (Death)
  Sender: FDA-Public Use
  Company Number: GB-CIPLA LTD.-2014GB02253

PATIENT
  Age: 63 Year
  Sex: Female

DRUGS (6)
  1. CARBOPLATIN. [Suspect]
     Active Substance: CARBOPLATIN
     Dosage: AUC 5, 4 CYCLES OF 3-WEEKLY
     Dates: start: 201207
  2. PEMETREXED [Suspect]
     Active Substance: PEMETREXED
     Indication: BREAST CANCER
     Dosage: 500 MG/M2, 4 CYCLES OF 3-WEEKLY
  3. RADIOTHERAPY [Suspect]
     Active Substance: RADIATION THERAPY
     Indication: BREAST CANCER
     Dosage: 30 GY IN FIVE FRACTIONS USING 6 MV PHOTONS ONCE WEEKLY
     Dates: start: 201301
  4. CARBOPLATIN. [Suspect]
     Active Substance: CARBOPLATIN
     Indication: BREAST CANCER
     Dosage: AUC 5, 4 CYCLES OF 3-WEEKLY
  5. DOCETAXEL. [Suspect]
     Active Substance: DOCETAXEL
     Indication: BREAST CANCER
     Dosage: 60 MG/M2, 3 WEEKLY
  6. RADIOTHERAPY [Suspect]
     Active Substance: RADIATION THERAPY
     Dosage: 8 GY SINGLE FRACTION USING 6 MEV ELECTRONS
     Dates: start: 201306

REACTIONS (1)
  - Lung cancer metastatic [Fatal]
